FAERS Safety Report 11195086 (Version 1)
Quarter: 2015Q2

REPORT INFORMATION
  Report Type: Spontaneous
  Country: US (occurrence: None)
  Receive Date: 20150615
  Receipt Date: 20150615
  Transmission Date: 20150821
  Serious: Yes (Other)
  Sender: FDA-Public Use
  Company Number: ADR-2015-01121

PATIENT
  Sex: Female
  Weight: 56.25 kg

DRUGS (159)
  1. DILAUDID [Suspect]
     Active Substance: HYDROMORPHONE HYDROCHLORIDE
     Route: 037
  2. ZANTAC [Suspect]
     Active Substance: RANITIDINE HYDROCHLORIDE
  3. LORAZEPAM. [Suspect]
     Active Substance: LORAZEPAM
  4. FORTEO [Suspect]
     Active Substance: TERIPARATIDE
  5. NEUROPATHIC PAIN COMPOUND 1 [Suspect]
     Active Substance: UNSPECIFIED INGREDIENT
  6. MEDROL [Suspect]
     Active Substance: METHYLPREDNISOLONE
  7. SKELAXIN [Suspect]
     Active Substance: METAXALONE
  8. XANAX [Suspect]
     Active Substance: ALPRAZOLAM
  9. ULTRACET [Suspect]
     Active Substance: ACETAMINOPHEN\TRAMADOL HYDROCHLORIDE
  10. GABAPENTIN. [Suspect]
     Active Substance: GABAPENTIN
  11. HYDROMORPHONE [Suspect]
     Active Substance: HYDROMORPHONE
  12. ONDANSETRON [Suspect]
     Active Substance: ONDANSETRON
  13. CARBAMAZEPINE. [Suspect]
     Active Substance: CARBAMAZEPINE
  14. FERROUS SULFATE [Suspect]
     Active Substance: FERROUS SULFATE\FERROUS SULFATE, DRIED
  15. PANTOPRAZOLE [Suspect]
     Active Substance: PANTOPRAZOLE SODIUM
  16. MILK OF MAGNESIA [Suspect]
     Active Substance: MAGNESIUM HYDROXIDE
  17. AMITRIPTYLINE [Suspect]
     Active Substance: AMITRIPTYLINE
  18. BENZOAZEPINE [Suspect]
     Active Substance: BENZODIAZEPINE
  19. SENNA [Suspect]
     Active Substance: SENNA LEAF\SENNOSIDES\SENNOSIDES A AND B
  20. LEVAQUIN [Suspect]
     Active Substance: LEVOFLOXACIN
  21. NAMENDA [Suspect]
     Active Substance: MEMANTINE HYDROCHLORIDE
  22. ZOLOFT [Suspect]
     Active Substance: SERTRALINE HYDROCHLORIDE
  23. BACLOFEN. [Suspect]
     Active Substance: BACLOFEN
     Dates: start: 20111011
  24. VITAMIN D3 [Suspect]
     Active Substance: CHOLECALCIFEROL
  25. VICODIN [Suspect]
     Active Substance: ACETAMINOPHEN\HYDROCODONE BITARTRATE
  26. CELEXA [Suspect]
     Active Substance: CITALOPRAM HYDROBROMIDE
  27. PIROXICAM. [Suspect]
     Active Substance: PIROXICAM
  28. HYOSCYAMINE [Suspect]
     Active Substance: HYOSCYAMINE
  29. LIBRAX [Suspect]
     Active Substance: CHLORDIAZEPOXIDE HYDROCHLORIDE\CLIDINIUM BROMIDE
  30. LAMICTAL [Suspect]
     Active Substance: LAMOTRIGINE
  31. NAPROXEN. [Suspect]
     Active Substance: NAPROXEN
  32. BISACODYL. [Suspect]
     Active Substance: BISACODYL
  33. PANTOPRAZOLE [Suspect]
     Active Substance: PANTOPRAZOLE SODIUM
  34. FLUPHENAZINE [Suspect]
     Active Substance: FLUPHENAZINE
  35. SOMA [Suspect]
     Active Substance: CARISOPRODOL
  36. MELATONIN [Suspect]
     Active Substance: MELATONIN
  37. RANITIDINE [Suspect]
     Active Substance: RANITIDINE\RANITIDINE HYDROCHLORIDE
  38. PANTOPRAZOLE [Suspect]
     Active Substance: PANTOPRAZOLE SODIUM
  39. NALTREXONE HCL [Suspect]
     Active Substance: NALTREXONE HYDROCHLORIDE
  40. AMBIEN [Suspect]
     Active Substance: ZOLPIDEM TARTRATE
  41. ALENDRONATE SODIUM. [Suspect]
     Active Substance: ALENDRONATE SODIUM
  42. VALACYCLOVIR [Suspect]
     Active Substance: VALACYCLOVIR HYDROCHLORIDE
  43. DOXYCYCLINE HYCLATE. [Suspect]
     Active Substance: DOXYCYCLINE HYCLATE
  44. PROMETHAZINE [Suspect]
     Active Substance: PROMETHAZINE\PROMETHAZINE HYDROCHLORIDE
  45. ORPHENADRINE [Suspect]
     Active Substance: ORPHENADRINE
  46. MEXILETINE [Suspect]
     Active Substance: MEXILETINE
  47. TRAMADOL [Suspect]
     Active Substance: TRAMADOL
  48. VITAMIN B COMPLEX WITH C [Suspect]
     Active Substance: ASCORBIC ACID\CALCIUM PANTOTHENATE\CYANOCOBALAMIN\NIACINAMIDE\PYRIDOXINE HYDROCHLORIDE\RIBOFLAVIN\THIAMINE MONONITRATE
  49. SAVELLA [Suspect]
     Active Substance: MILNACIPRAN HYDROCHLORIDE
  50. CYMBALTA [Suspect]
     Active Substance: DULOXETINE HYDROCHLORIDE
  51. NUCYNTA [Suspect]
     Active Substance: TAPENTADOL HYDROCHLORIDE
  52. PRISTIQ EXTENDED RELEASE [Suspect]
     Active Substance: DESVENLAFAXINE SUCCINATE
  53. GABAPENTIN. [Suspect]
     Active Substance: GABAPENTIN
  54. OSTEOPOROSIS INFUSION [Suspect]
     Active Substance: UNSPECIFIED INGREDIENT
  55. VENLAFLAXINE [Suspect]
     Active Substance: VENLAFAXINE HYDROCHLORIDE
  56. NORTRIPTYLINE [Suspect]
     Active Substance: NORTRIPTYLINE
  57. LACTATED RINGERS [Suspect]
     Active Substance: CALCIUM CHLORIDE\POTASSIUM CHLORIDE\SODIUM CHLORIDE\SODIUM LACTATE
  58. BACTRIM [Suspect]
     Active Substance: SULFAMETHOXAZOLE\TRIMETHOPRIM
  59. DOCUSATE [Suspect]
     Active Substance: DOCUSATE
  60. SERTRALINE HCL [Suspect]
     Active Substance: SERTRALINE HYDROCHLORIDE
  61. OXYCODONE [Suspect]
     Active Substance: OXYCODONE
  62. CIPROFLOXACIN HCL [Suspect]
     Active Substance: CIPROFLOXACIN HYDROCHLORIDE
  63. LIDODERM [Suspect]
     Active Substance: LIDOCAINE
  64. BUPIVACAINE INTRATHECAL [Suspect]
     Active Substance: BUPIVACAINE
     Route: 037
  65. OLANZAPINE. [Suspect]
     Active Substance: OLANZAPINE
  66. SAVELLA [Suspect]
     Active Substance: MILNACIPRAN HYDROCHLORIDE
  67. TIZANIDINE (TIZANIDINE) [Suspect]
     Active Substance: TIZANIDINE
  68. HORIZANT [Suspect]
     Active Substance: GABAPENTIN ENACARBIL
  69. CELEBREX [Suspect]
     Active Substance: CELECOXIB
  70. LODINE [Suspect]
     Active Substance: ETODOLAC
  71. VALIUM [Suspect]
     Active Substance: DIAZEPAM
  72. PERCOCET [Suspect]
     Active Substance: ACETAMINOPHEN\OXYCODONE HYDROCHLORIDE
  73. TOPROL XL [Suspect]
     Active Substance: METOPROLOL SUCCINATE
  74. PLAQUENIL [Suspect]
     Active Substance: HYDROXYCHLOROQUINE SULFATE
  75. TYLENOL [Suspect]
     Active Substance: ACETAMINOPHEN
  76. DICLOFENAC SODIUM. [Suspect]
     Active Substance: DICLOFENAC SODIUM
  77. ENOXAPARIN [Suspect]
     Active Substance: ENOXAPARIN
  78. AMITRIPTYLINE [Suspect]
     Active Substance: AMITRIPTYLINE
  79. CYCLOBENZAPRINE [Suspect]
     Active Substance: CYCLOBENZAPRINE
  80. DULOXETINE HCL [Suspect]
     Active Substance: DULOXETINE HYDROCHLORIDE
  81. CIMETIDINE [Suspect]
     Active Substance: CIMETIDINE
  82. LIDOCAINE. [Suspect]
     Active Substance: LIDOCAINE
  83. ACETAMINOPHEN. [Suspect]
     Active Substance: ACETAMINOPHEN
  84. HEPARIN [Suspect]
     Active Substance: HEPARIN SODIUM
  85. TRAMADOL [Suspect]
     Active Substance: TRAMADOL
  86. MELOXICAM. [Suspect]
     Active Substance: MELOXICAM
  87. LIDOCAINE. [Suspect]
     Active Substance: LIDOCAINE
     Route: 061
  88. NORTIPTYLINE [Suspect]
     Active Substance: NORTRIPTYLINE
  89. KETOROLAC [Suspect]
     Active Substance: KETOROLAC\KETOROLAC TROMETHAMINE
  90. EFFEXOR [Suspect]
     Active Substance: VENLAFAXINE HYDROCHLORIDE
     Dates: start: 20110930
  91. ACTONEL [Suspect]
     Active Substance: RISEDRONATE SODIUM
  92. BUTRANS [Suspect]
     Active Substance: BUPRENORPHINE
  93. ABILIFY [Suspect]
     Active Substance: ARIPIPRAZOLE
  94. CLONAZEPAM. [Suspect]
     Active Substance: CLONAZEPAM
     Dates: start: 20110930
  95. DIVALPROEX [Suspect]
     Active Substance: DIVALPROEX SODIUM
  96. ALPRAZOLAM. [Suspect]
     Active Substance: ALPRAZOLAM
  97. METHYLPREDNISOLONE. [Suspect]
     Active Substance: METHYLPREDNISOLONE
  98. IBUPROFEN. [Suspect]
     Active Substance: IBUPROFEN
  99. LIMBREL [Suspect]
     Active Substance: FLAVOCOXID
  100. BACLOFEN. [Suspect]
     Active Substance: BACLOFEN
     Indication: PAIN
     Dates: start: 20120107
  101. NALTREXONE [Suspect]
     Active Substance: NALTREXONE
  102. LITHIUM. [Suspect]
     Active Substance: LITHIUM
  103. MATHOCARBAMOL [Suspect]
     Active Substance: METHOCARBAMOL
  104. DOCUSATE [Suspect]
     Active Substance: DOCUSATE
  105. MULTIVITAMIN [Suspect]
     Active Substance: VITAMINS
  106. TOPAMAX [Suspect]
     Active Substance: TOPIRAMATE
  107. HYDROXYZINE [Suspect]
     Active Substance: HYDROXYZINE\HYDROXYZINE HYDROCHLORIDE
  108. LORAZEPAM. [Suspect]
     Active Substance: LORAZEPAM
  109. NEXIUM [Suspect]
     Active Substance: ESOMEPRAZOLE MAGNESIUM
  110. SEROQUEL [Suspect]
     Active Substance: QUETIAPINE FUMARATE
  111. MOBIC [Suspect]
     Active Substance: MELOXICAM
  112. DEPAKOTE [Suspect]
     Active Substance: DIVALPROEX SODIUM
  113. TRANYLCYPROMINE [Suspect]
     Active Substance: TRANYLCYPROMINE
  114. MACROBID [Suspect]
     Active Substance: NITROFURANTOIN\NITROFURANTOIN MONOHYDRATE
  115. RISPERIDONE. [Suspect]
     Active Substance: RISPERIDONE
  116. NUVIGIL [Suspect]
     Active Substance: ARMODAFINIL
     Dates: start: 20110930
  117. TRAZODONE [Suspect]
     Active Substance: TRAZODONE HYDROCHLORIDE
  118. LORAZEPAM. [Suspect]
     Active Substance: LORAZEPAM
  119. VALIUM [Suspect]
     Active Substance: DIAZEPAM
  120. AMITRIPTYLINE [Suspect]
     Active Substance: AMITRIPTYLINE
  121. HYDROXYZINE [Suspect]
     Active Substance: HYDROXYZINE\HYDROXYZINE HYDROCHLORIDE
  122. MELATONIN [Suspect]
     Active Substance: MELATONIN
  123. MIRALAX [Suspect]
     Active Substance: POLYETHYLENE GLYCOL 3350
  124. DIAZEPAM. [Suspect]
     Active Substance: DIAZEPAM
  125. FLEXERIL [Suspect]
     Active Substance: CYCLOBENZAPRINE HYDROCHLORIDE
  126. ZOLOFT [Suspect]
     Active Substance: SERTRALINE HYDROCHLORIDE
  127. TORADOL [Suspect]
     Active Substance: KETOROLAC TROMETHAMINE
  128. CHOLECALCIFEROL [Suspect]
     Active Substance: CHOLECALCIFEROL
  129. METHOCARBAMOL. [Suspect]
     Active Substance: METHOCARBAMOL
  130. LITHIUM. [Suspect]
     Active Substance: LITHIUM
  131. PROLIXIN [Suspect]
     Active Substance: FLUPHENAZINE HYDROCHLORIDE
  132. PROLIXIN [Suspect]
     Active Substance: FLUPHENAZINE HYDROCHLORIDE
  133. ARTHROTEC [Suspect]
     Active Substance: DICLOFENAC SODIUM\MISOPROSTOL
  134. PROPOXY-N/APAP [Suspect]
     Active Substance: ACETAMINOPHEN\PROPOXYPHENE HYDROCHLORIDE
  135. METAXALONE. [Suspect]
     Active Substance: METAXALONE
  136. NITROSTAT [Suspect]
     Active Substance: NITROGLYCERIN
  137. PREDNISONE. [Suspect]
     Active Substance: PREDNISONE
  138. QUETIAPINE FUMARATE. [Suspect]
     Active Substance: QUETIAPINE FUMARATE
  139. MOBIC [Suspect]
     Active Substance: MELOXICAM
  140. ZANAFLEX [Suspect]
     Active Substance: TIZANIDINE HYDROCHLORIDE
  141. DICLOFENAC [Suspect]
     Active Substance: DICLOFENAC
  142. RANITIDINE [Suspect]
     Active Substance: RANITIDINE\RANITIDINE HYDROCHLORIDE
  143. SENNA [Suspect]
     Active Substance: SENNA LEAF\SENNOSIDES\SENNOSIDES A AND B
  144. TOPIRAMATE. [Suspect]
     Active Substance: TOPIRAMATE
  145. BEXTRA [Suspect]
     Active Substance: VALDECOXIB
  146. ATIVAN [Suspect]
     Active Substance: LORAZEPAM
  147. ASPIRIN. [Suspect]
     Active Substance: ASPIRIN
  148. ROXICODONE [Suspect]
     Active Substance: OXYCODONE HYDROCHLORIDE
  149. KETOROLAC [Suspect]
     Active Substance: KETOROLAC\KETOROLAC TROMETHAMINE
  150. OLANZAPINE. [Suspect]
     Active Substance: OLANZAPINE
  151. MAGNESIUM CITRATE. [Suspect]
     Active Substance: MAGNESIUM CITRATE
  152. PHENERGAN [Suspect]
     Active Substance: PROMETHAZINE HYDROCHLORIDE
  153. HYDROCODONE BITARTRATE AND ACETAMINOPHEN [Suspect]
     Active Substance: ACETAMINOPHEN\HYDROCODONE BITARTRATE
  154. BIAXIN [Suspect]
     Active Substance: CLARITHROMYCIN
  155. AMOXICILLIN. [Suspect]
     Active Substance: AMOXICILLIN
  156. SULFAMETHOXAZOLE [Suspect]
     Active Substance: SULFAMETHOXAZOLE
  157. LEXAPRO [Suspect]
     Active Substance: ESCITALOPRAM OXALATE
  158. CEPHALEXIN. [Suspect]
     Active Substance: CEPHALEXIN
  159. FENTORA [Suspect]
     Active Substance: FENTANYL CITRATE

REACTIONS (41)
  - Pain in extremity [None]
  - Panic reaction [None]
  - Substance-induced psychotic disorder [None]
  - Social avoidant behaviour [None]
  - Joint effusion [None]
  - Hallucination [None]
  - Fractured sacrum [None]
  - Hyperaesthesia [None]
  - Sacroiliitis [None]
  - Neuralgia [None]
  - Asthenia [None]
  - Stress fracture [None]
  - Muscular weakness [None]
  - Paraesthesia [None]
  - Skin discolouration [None]
  - Depression [None]
  - Muscle spasms [None]
  - Burning sensation [None]
  - Myofascial pain syndrome [None]
  - Scoliosis [None]
  - Back pain [None]
  - Urinary retention [None]
  - Arthralgia [None]
  - Atrophy [None]
  - Complex regional pain syndrome [None]
  - Bursitis [None]
  - Paralysis [None]
  - Psychogenic pain disorder [None]
  - Osteoporosis [None]
  - Diarrhoea [None]
  - Musculoskeletal stiffness [None]
  - Hypoaesthesia [None]
  - Post laminectomy syndrome [None]
  - No therapeutic response [None]
  - Osteoarthritis [None]
  - Mobility decreased [None]
  - Urinary incontinence [None]
  - Mood swings [None]
  - Haemangioma [None]
  - Insomnia [None]
  - Fall [None]
